FAERS Safety Report 14869363 (Version 1)
Quarter: 2018Q2

REPORT INFORMATION
  Report Type: Spontaneous
  Country: ES (occurrence: ES)
  Receive Date: 20180509
  Receipt Date: 20180509
  Transmission Date: 20180711
  Serious: Yes (Hospitalization)
  Sender: FDA-Public Use
  Company Number: ES-BAXTER-2018BAX013711

PATIENT
  Age: 66 Year
  Sex: Female

DRUGS (2)
  1. UROMITEXAN 200MG INYECTABLE [Suspect]
     Active Substance: MESNA
     Indication: SUPPORTIVE CARE
     Route: 065
     Dates: start: 20180327, end: 20180401
  2. TRONOXAL 1G INYECTABLE [Suspect]
     Active Substance: IFOSFAMIDE
     Indication: LIPOSARCOMA
     Dosage: CONTINUOUS INFUSION OF 5 DAYS WITH MESNA SUPPORT
     Route: 042
     Dates: start: 20180327, end: 20180401

REACTIONS (5)
  - Hepatic function abnormal [Not Recovered/Not Resolved]
  - Somnolence [Not Recovered/Not Resolved]
  - Acute kidney injury [Not Recovered/Not Resolved]
  - Pancytopenia [Not Recovered/Not Resolved]
  - Toxic encephalopathy [Not Recovered/Not Resolved]

NARRATIVE: CASE EVENT DATE: 20180401
